FAERS Safety Report 6893216-6 (Version None)
Quarter: 2010Q3

REPORT INFORMATION
  Report Type: 
  Country: None (occurrence: None)
  Receive Date: 20100731
  Receipt Date: 20090701
  Transmission Date: 20110219
  Serious: No
  Sender: FDA-Public Use
  Company Number: US-PFIZER INC-2009235482

PATIENT
  Sex: Female
  Weight: 108.84 kg

DRUGS (1)
  1. NEURONTIN [Suspect]
     Indication: HERPES ZOSTER
     Dosage: 150 MG, 2X/DAY

REACTIONS (4)
  - FIBROMYALGIA [None]
  - GAIT DISTURBANCE [None]
  - MEMORY IMPAIRMENT [None]
  - NEURALGIA [None]
